FAERS Safety Report 11146495 (Version 5)
Quarter: 2015Q3

REPORT INFORMATION
  Report Type: Spontaneous
  Country: US (occurrence: US)
  Receive Date: 20150528
  Receipt Date: 20150713
  Transmission Date: 20151125
  Serious: Yes (Other)
  Sender: FDA-Public Use
  Company Number: US-SA-2015SA069416

PATIENT
  Age: 79 Year
  Sex: Female

DRUGS (4)
  1. LANTUS SOLOSTAR [Suspect]
     Active Substance: INSULIN GLARGINE
     Indication: TYPE 2 DIABETES MELLITUS
     Dosage: TREATMENT STRAT DATE: 3-4 YEARS DOSE:10 UNIT(S)
     Route: 065
  2. SOLOSTAR [Suspect]
     Active Substance: DEVICE
     Indication: TYPE 2 DIABETES MELLITUS
  3. SOLOSTAR [Suspect]
     Active Substance: DEVICE
     Indication: TYPE 2 DIABETES MELLITUS
  4. LANTUS SOLOSTAR [Suspect]
     Active Substance: INSULIN GLARGINE
     Indication: TYPE 2 DIABETES MELLITUS
     Dosage: TREATMENT STRAT DATE: 3-4 YEARS DOSE:10 UNIT(S)
     Route: 065

REACTIONS (4)
  - Mobility decreased [Unknown]
  - Blood glucose increased [Unknown]
  - Expired product administered [Unknown]
  - Arthropathy [Unknown]

NARRATIVE: CASE EVENT DATE: 20150519
